FAERS Safety Report 6224819-X (Version None)
Quarter: 2009Q2

REPORT INFORMATION
  Report Type: 
  Country: None (occurrence: None)
  Receive Date: 20090612
  Receipt Date: 20090330
  Transmission Date: 20091009
  Serious: No
  Sender: FDA-Public Use
  Company Number: US-ABBOTT-09P-163-0565462-00

PATIENT
  Sex: Female

DRUGS (2)
  1. HUMIRA [Suspect]
     Indication: CROHN'S DISEASE
     Dates: start: 20090225
  2. PREDNISONE [Concomitant]
     Indication: DRUG USE FOR UNKNOWN INDICATION
     Dosage: 15MG-BEGINNING TO TAPER DOSE
     Dates: start: 20081112

REACTIONS (4)
  - BRONCHITIS [None]
  - COUGH [None]
  - DRUG DOSE OMISSION [None]
  - PYREXIA [None]
